FAERS Safety Report 4309946-6 (Version None)
Quarter: 2004Q1

REPORT INFORMATION
  Report Type: 
  Country: None (occurrence: None)
  Receive Date: 20040301
  Receipt Date: 20040217
  Transmission Date: 20041129
  Serious: Yes (Death)
  Sender: FDA-Public Use
  Company Number: 2004S1000471

PATIENT
  Age: 83 Year
  Sex: Male

DRUGS (2)
  1. CLOZAPINE [Suspect]
     Dosage: 25 MG, QD, ORAL
     Route: 047
  2. CLOZAPINE [Suspect]
     Dosage: 100 MG QD, ORAL
     Route: 048

REACTIONS (1)
  - DEATH [None]
